FAERS Safety Report 6501777-1 (Version None)
Quarter: 2009Q4

REPORT INFORMATION
  Report Type: 
  Country: None (occurrence: None)
  Receive Date: 20091203
  Receipt Date: 20091117
  Transmission Date: 20100525
  Serious: Yes (Death)
  Sender: FDA-Public Use
  Company Number: B0608765A

PATIENT

DRUGS (6)
  1. ETOPOSIDE [Suspect]
     Indication: ACUTE MYELOID LEUKAEMIA
     Dosage: INTRAVENOUS
     Route: 042
  2. CYTARABINE [Suspect]
     Indication: ACUTE MYELOID LEUKAEMIA
  3. BUSULPHAN (FORMULATION UNKNOWN) (GENERIC) (BUSULFAN) [Suspect]
  4. GRANULOCYTE COL.STIM.FACT [Concomitant]
  5. ANTIFUNGAL [Concomitant]
  6. CO-TRIMOXAZOLE [Concomitant]

REACTIONS (3)
  - MYELODYSPLASTIC SYNDROME [None]
  - PNEUMONIA [None]
  - TRANSPLANT FAILURE [None]
